FAERS Safety Report 5164378-6 (Version None)
Quarter: 2006Q4

REPORT INFORMATION
  Report Type: 
  Country: None (occurrence: None)
  Receive Date: 20061205
  Receipt Date: 20061123
  Transmission Date: 20070319
  Serious: Yes (Other)
  Sender: FDA-Public Use
  Company Number: AU-NOVOPROD-258884

PATIENT
  Sex: Male

DRUGS (2)
  1. MIXTARD 30/70 PENFILL [Suspect]
     Indication: DRUG USE FOR UNKNOWN INDICATION
  2. WARFARIN SODIUM [Concomitant]
     Indication: PULMONARY THROMBOSIS

REACTIONS (1)
  - PULMONARY THROMBOSIS [None]
